FAERS Safety Report 5156776-1 (Version None)
Quarter: 2006Q4

REPORT INFORMATION
  Report Type: 
  Country: None (occurrence: None)
  Receive Date: 20061115
  Receipt Date: 20061031
  Transmission Date: 20070319
  Serious: Yes (Death, Life-Threatening, Hospitalization, Congenital Anomaly)
  Sender: FDA-Public Use
  Company Number: AND_0481_2006

PATIENT
  Sex: Female
  Weight: 1.9 kg

DRUGS (2)
  1. NAPROXEN SODIUM [Suspect]
     Indication: COMPLICATION OF PREGNANCY
     Dosage: 1100 MG QDAY UNK
  2. NAPROXEN SODIUM [Suspect]
     Indication: MYALGIA
     Dosage: 1100 MG QDAY UNK

REACTIONS (21)
  - ANURIA [None]
  - BLOOD CREATININE INCREASED [None]
  - BLOOD CULTURE POSITIVE [None]
  - BLOOD POTASSIUM INCREASED [None]
  - BLOOD SODIUM DECREASED [None]
  - BLOOD UREA INCREASED [None]
  - CAESAREAN SECTION [None]
  - DISSEMINATED INTRAVASCULAR COAGULATION IN NEWBORN [None]
  - DRUG EXPOSURE DURING PREGNANCY [None]
  - ILEAL PERFORATION [None]
  - JOINT CONTRACTURE [None]
  - NEONATAL CANDIDA INFECTION [None]
  - OEDEMA NEONATAL [None]
  - OLIGOHYDRAMNIOS [None]
  - PERITONEAL DIALYSIS [None]
  - PERITONEAL FLUID ANALYSIS ABNORMAL [None]
  - PREMATURE BABY [None]
  - RENAL APLASIA [None]
  - RENIN INCREASED [None]
  - SEPSIS NEONATAL [None]
  - SMALL FOR DATES BABY [None]
